FAERS Safety Report 9412034 (Version 1)
Quarter: 2013Q3

REPORT INFORMATION
  Report Type: Spontaneous
  Country: US (occurrence: US)
  Receive Date: 20130722
  Receipt Date: 20130722
  Transmission Date: 20140515
  Serious: Yes (Other)
  Sender: FDA-Public Use
  Company Number: US-COVIDIEN/TYCO HEALTHCARE/MALLINCKRODT-T201303704

PATIENT
  Sex: Female

DRUGS (4)
  1. GABLOFEN [Suspect]
     Indication: PAIN
     Dosage: 500 MCG/ML AT A RATE OF 125 MCG/DAY
     Route: 037
     Dates: end: 2013
  2. GABLOFEN [Suspect]
     Dosage: 1000 MCG/ML AT A RATE OF 220 MCG/DAY
     Route: 037
     Dates: start: 2013
  3. MORPHINE [Suspect]
     Indication: PAIN
     Dosage: 25 MG/DAY
     Route: 037
     Dates: end: 2013
  4. MORPHINE [Suspect]
     Dosage: 50 MCG/ML AT A RATE OF 5.5 MCG/DAY
     Route: 037

REACTIONS (4)
  - Overdose [Unknown]
  - Seroma [Unknown]
  - Muscular weakness [Unknown]
  - Drug ineffective [Unknown]
